FAERS Safety Report 9922625 (Version 1)
Quarter: 2014Q1

REPORT INFORMATION
  Report Type: Spontaneous
  Country: US (occurrence: US)
  Receive Date: 20140225
  Receipt Date: 20140225
  Transmission Date: 20141002
  Serious: No
  Sender: FDA-Public Use
  Company Number: US-MYLANLABS-2013S1026616

PATIENT
  Age: 49 Year
  Sex: Male

DRUGS (6)
  1. DIVALPROEX SODIUM EXTENDED-RELEASE TABLETS [Suspect]
     Route: 048
     Dates: start: 20131123
  2. CLONAZEPAM [Concomitant]
  3. LOVASTATIN [Concomitant]
  4. STRATTERA [Concomitant]
  5. QUETIAPINE [Concomitant]
  6. TRIAMTERENE [Concomitant]

REACTIONS (1)
  - Dysgeusia [Not Recovered/Not Resolved]
